FAERS Safety Report 13652681 (Version 1)
Quarter: 2017Q2

REPORT INFORMATION
  Report Type: Spontaneous
  Country: US (occurrence: US)
  Receive Date: 20170614
  Receipt Date: 20170614
  Transmission Date: 20170830
  Serious: No
  Sender: FDA-Public Use
  Company Number: US-ROCHE-696374

PATIENT
  Sex: Male

DRUGS (2)
  1. XELODA [Suspect]
     Active Substance: CAPECITABINE
     Indication: BASOSQUAMOUS CARCINOMA OF SKIN
     Route: 065
  2. XELODA [Suspect]
     Active Substance: CAPECITABINE
     Dosage: DOSE: INCREASED
     Route: 065

REACTIONS (3)
  - Palmar-plantar erythrodysaesthesia syndrome [Unknown]
  - Ocular discomfort [Unknown]
  - Skin lesion [Not Recovered/Not Resolved]
